FAERS Safety Report 6138525-3 (Version None)
Quarter: 2009Q1

REPORT INFORMATION
  Report Type: 
  Country: None (occurrence: None)
  Receive Date: 20090327
  Receipt Date: 20090327
  Transmission Date: 20090719
  Serious: Yes (Hospitalization)
  Sender: FDA-Public Use
  Company Number: None

PATIENT
  Age: 64 Year
  Sex: Male

DRUGS (2)
  1. HEPARIN [Suspect]
     Indication: THROMBOSIS PROPHYLAXIS
     Dates: start: 20081231, end: 20090103
  2. ENOXAPARIN SODIUM [Suspect]
     Dosage: 60 MG BID SQ
     Route: 058
     Dates: start: 20090103, end: 20090112

REACTIONS (1)
  - HEPARIN-INDUCED THROMBOCYTOPENIA [None]
